FAERS Safety Report 18745434 (Version 2)
Quarter: 2021Q1

REPORT INFORMATION
  Report Type: Report from Study
  Country: US (occurrence: US)
  Receive Date: 20210115
  Receipt Date: 20210219
  Transmission Date: 20210419
  Serious: No
  Sender: FDA-Public Use
  Company Number: US-ACADIA PHARMACEUTICALS INC.-ACA-2021-PIM-000049

PATIENT
  Sex: Male

DRUGS (19)
  1. CLOPIDOGREL [Concomitant]
     Active Substance: CLOPIDOGREL BISULFATE
     Dosage: UNK
     Dates: start: 20160301
  2. JANUVIA [Concomitant]
     Active Substance: SITAGLIPTIN PHOSPHATE
  3. NUPLAZID [Suspect]
     Active Substance: PIMAVANSERIN TARTRATE
     Indication: PARKINSON^S DISEASE
     Dosage: 34 MILLIGRAM, QD
     Route: 048
     Dates: start: 20210106
  4. BUPROPION. [Concomitant]
     Active Substance: BUPROPION
  5. CARBIDOPA/LEVODOPA [Concomitant]
     Active Substance: CARBIDOPA\LEVODOPA
  6. PANTOPRAZOLE [Concomitant]
     Active Substance: PANTOPRAZOLE
     Dosage: UNK
     Dates: start: 20120101
  7. ROSUVASTATIN. [Concomitant]
     Active Substance: ROSUVASTATIN
  8. CARVEDILOL. [Concomitant]
     Active Substance: CARVEDILOL
  9. TRAZODONE [Concomitant]
     Active Substance: TRAZODONE HYDROCHLORIDE
  10. MEMANTINE. [Concomitant]
     Active Substance: MEMANTINE
  11. SINEMET [Concomitant]
     Active Substance: CARBIDOPA\LEVODOPA
     Dosage: UNK
     Dates: start: 20150101
  12. ANORO ELLIPTA [Concomitant]
     Active Substance: UMECLIDINIUM BROMIDE\VILANTEROL TRIFENATATE
  13. ENTACAPONE. [Concomitant]
     Active Substance: ENTACAPONE
  14. FUROSEMIDE. [Concomitant]
     Active Substance: FUROSEMIDE
  15. TAMSULOSIN [Concomitant]
     Active Substance: TAMSULOSIN
  16. AMLODIPINE [Concomitant]
     Active Substance: AMLODIPINE BESYLATE
  17. LISINOPRIL. [Concomitant]
     Active Substance: LISINOPRIL
  18. DOXYCYCLINE HCL [Concomitant]
     Active Substance: DOXYCYCLINE HYDROCHLORIDE
  19. GLIMEPIRIDE. [Concomitant]
     Active Substance: GLIMEPIRIDE

REACTIONS (2)
  - Confusional state [Unknown]
  - Oedema peripheral [Unknown]
